FAERS Safety Report 7650317-2 (Version None)
Quarter: 2011Q3

REPORT INFORMATION
  Report Type: 
  Country: None (occurrence: None)
  Receive Date: 20110802
  Receipt Date: 20110729
  Transmission Date: 20111222
  Serious: Yes (Death)
  Sender: FDA-Public Use
  Company Number: US-B.I. PHARMACEUTICALS,INC./RIDGEFIELD-2011-BP-18731BP

PATIENT
  Age: 57 Year
  Sex: Female

DRUGS (1)
  1. PRADAXA [Suspect]
     Indication: ARTIFICIAL HEART DEVICE USER
     Dosage: 300 MG
     Dates: start: 20110601, end: 20110704

REACTIONS (3)
  - PULMONARY OEDEMA [None]
  - PULMONARY EMBOLISM [None]
  - OEDEMA PERIPHERAL [None]
